FAERS Safety Report 10159130 (Version 1)
Quarter: 2014Q2

REPORT INFORMATION
  Report Type: Spontaneous
  Country: US (occurrence: None)
  Receive Date: 20140507
  Receipt Date: 20140507
  Transmission Date: 20141212
  Serious: Yes (Other)
  Sender: FDA-Public Use
  Company Number: None

PATIENT
  Age: 67 Year
  Sex: Female
  Weight: 63.6 kg

DRUGS (1)
  1. FORTEO 600 MCG/2.4 ML LILLY [Suspect]
     Indication: OSTEOPOROSIS
     Dosage: 20 MCG, QD, SUBQ
     Route: 058
     Dates: start: 201401, end: 201402

REACTIONS (2)
  - Unevaluable event [None]
  - Therapy change [None]
